FAERS Safety Report 19398471 (Version 1)
Quarter: 2021Q2

REPORT INFORMATION
  Report Type: Spontaneous
  Country: US (occurrence: US)
  Receive Date: 20210609
  Receipt Date: 20210609
  Transmission Date: 20210717
  Serious: No
  Sender: FDA-Public Use
  Company Number: None

PATIENT
  Age: 48 Year
  Sex: Male

DRUGS (2)
  1. PANTOPRAZOLE 40 MG KREMERS [Suspect]
     Active Substance: PANTOPRAZOLE SODIUM
     Indication: GASTROOESOPHAGEAL REFLUX DISEASE
     Dosage: ?          QUANTITY:1 TABLET(S);OTHER FREQUENCY:BEFORE DINNER;?
     Route: 048
     Dates: start: 20210507, end: 20210607
  2. PANTOPRAZOLE 40 MG KREMERS [Suspect]
     Active Substance: PANTOPRAZOLE SODIUM
     Indication: DYSPEPSIA
     Dosage: ?          QUANTITY:1 TABLET(S);OTHER FREQUENCY:BEFORE DINNER;?
     Route: 048
     Dates: start: 20210507, end: 20210607

REACTIONS (1)
  - Urticaria [None]

NARRATIVE: CASE EVENT DATE: 20210606
